FAERS Safety Report 9172923 (Version 1)
Quarter: 2012Q4

REPORT INFORMATION
  Report Type: 
  Country: US (occurrence: US)
  Receive Date: 20120911
  Receipt Date: 20120911
  Transmission Date: 20130627
  Serious: No
  Sender: FDA-Public Use
  Company Number: US-009507513-1208USA011417

PATIENT

DRUGS (5)
  1. VICTRELIS [Suspect]
     Indication: HEPATITIS C
     Dosage: UNK
     Dates: start: 20120817
  2. PEG-INTRON [Suspect]
     Indication: HEPATITIS C
     Dosage: UNK
     Dates: start: 20120720
  3. REBETOL [Suspect]
     Indication: HEPATITIS C
     Dosage: 4 DF, qd
     Dates: start: 20120720
  4. REBETOL [Suspect]
     Dosage: 2 DF, qam
  5. REBETOL [Suspect]
     Dosage: 1 DF, qpm

REACTIONS (5)
  - Fatigue [Recovering/Resolving]
  - Anaemia [Recovering/Resolving]
  - Myalgia [Unknown]
  - Injection site discolouration [Unknown]
  - Nasopharyngitis [Unknown]
